FAERS Safety Report 7256135 (Version 6)
Quarter: 2012Q4

REPORT INFORMATION
  Report Type: Report from Study
  Country: JP (occurrence: JP)
  Receive Date: 20100126
  Receipt Date: 20121030
  Transmission Date: 20130627
  Serious: Yes (Hospitalization)
  Sender: FDA-Public Use
  Company Number: JP-ROCHE-680309

PATIENT
  Age: 10 Year
  Sex: Male

DRUGS (30)
  1. TOCILIZUMAB [Suspect]
     Indication: JUVENILE ARTHRITIS
     Route: 041
     Dates: start: 20091207, end: 20091207
  2. TOCILIZUMAB [Suspect]
     Route: 041
     Dates: start: 20091222, end: 20091222
  3. DEXAMETHASONE [Suspect]
     Indication: JUVENILE ARTHRITIS
     Dosage: DOSE:10.0 MG PER DAY
     Route: 042
     Dates: start: 20091222, end: 20091228
  4. DEXAMETHASONE [Suspect]
     Dosage: DOSE:REDUCED TO 5.0 MG PER DAY
     Route: 042
     Dates: start: 20091229, end: 20091230
  5. PREDNISOLONE [Suspect]
     Indication: JUVENILE ARTHRITIS
     Route: 048
  6. PREDNISOLONE [Suspect]
     Route: 048
     Dates: start: 2009, end: 20091228
  7. PREDNISOLONE [Suspect]
     Route: 048
     Dates: start: 20091229, end: 20100117
  8. PREDNISOLONE [Suspect]
     Route: 048
     Dates: start: 20100118, end: 20100131
  9. PREDNISOLONE [Suspect]
     Route: 048
     Dates: start: 20100201, end: 20100214
  10. PREDNISOLONE [Suspect]
     Route: 048
     Dates: start: 20100215, end: 20100228
  11. PREDNISOLONE [Suspect]
     Route: 048
     Dates: start: 20100301, end: 20100425
  12. PREDNISOLONE [Suspect]
     Route: 048
     Dates: start: 20100426, end: 20100516
  13. PREDNISOLONE [Suspect]
     Route: 048
     Dates: start: 20100517, end: 20100613
  14. PREDNISOLONE [Suspect]
     Route: 048
     Dates: start: 20100614, end: 20100807
  15. PREDNISOLONE [Suspect]
     Route: 048
     Dates: start: 20100809, end: 20100905
  16. PREDNISOLONE [Suspect]
     Route: 048
     Dates: start: 20100906, end: 20100910
  17. PREDNISOLONE [Suspect]
     Route: 048
     Dates: start: 20100911, end: 20101024
  18. PREDNISOLONE [Suspect]
     Route: 048
     Dates: start: 20101025, end: 20101121
  19. PREDNISOLONE [Suspect]
     Route: 048
     Dates: start: 20101122, end: 20110124
  20. NEORAL [Concomitant]
     Dosage: DOSE FORM: PERORAL AGENT.
     Route: 048
  21. NEORAL [Concomitant]
     Route: 048
     Dates: start: 20091228, end: 20100101
  22. NEORAL [Concomitant]
     Route: 048
     Dates: start: 20100102, end: 20100314
  23. ENALAPRIL [Concomitant]
     Route: 048
  24. TOWARAT-L [Concomitant]
     Dosage: DOSE FORM: SUSTAINED-RELEASE TABLET
     Route: 048
  25. TAKEPRON [Concomitant]
     Route: 048
  26. URSO [Concomitant]
     Dosage: DOSE FORM: PERORAL AGENT.
     Route: 048
  27. PROGRAF [Concomitant]
     Dosage: DOSE FORM: PERORAL AGENT
     Route: 048
     Dates: start: 20100315, end: 20100328
  28. PROGRAF [Concomitant]
     Dosage: DOSE FORM: PERORAL AGENT
     Route: 048
     Dates: start: 20100329, end: 20100411
  29. PROGRAF [Concomitant]
     Dosage: DOSE FORM: PERORAL AGENT; infusion rate decreased
     Route: 048
     Dates: start: 20100412, end: 20110124
  30. SANDIMMUN [Concomitant]
     Indication: HISTIOCYTOSIS HAEMATOPHAGIC
     Route: 042
     Dates: start: 20091222, end: 20091227

REACTIONS (4)
  - Histiocytosis haematophagic [Recovered/Resolved]
  - Hypertensive encephalopathy [Recovering/Resolving]
  - Osteoporosis [Recovered/Resolved]
  - Juvenile idiopathic arthritis [Recovering/Resolving]
